FAERS Safety Report 4878262-6 (Version None)
Quarter: 2006Q1

REPORT INFORMATION
  Report Type: 
  Country: None (occurrence: None)
  Receive Date: 20060111
  Receipt Date: 20050517
  Transmission Date: 20060701
  Serious: Yes (Hospitalization, Disabling)
  Sender: FDA-Public Use
  Company Number: US-MERCK-0505USA02116

PATIENT
  Age: 58 Year
  Sex: Female
  Weight: 61 kg

DRUGS (2)
  1. VIOXX [Suspect]
     Indication: ARTHRITIS
     Route: 048
     Dates: start: 20000401, end: 20040901
  2. ASPIRIN FREE EXCEDRIN [Concomitant]
     Indication: PAIN
     Route: 065

REACTIONS (4)
  - ARTERIAL DISORDER [None]
  - CORONARY ARTERY DISEASE [None]
  - LUNG DISORDER [None]
  - NEPHROLITHIASIS [None]
